FAERS Safety Report 5119123-7 (Version None)
Quarter: 2006Q3

REPORT INFORMATION
  Report Type: 
  Country: None (occurrence: None)
  Receive Date: 20060929
  Receipt Date: 20060929
  Transmission Date: 20061208
  Serious: No
  Sender: FDA-Public Use
  Company Number: None

PATIENT
  Sex: Female

DRUGS (2)
  1. MORPHINE SULFATE [Suspect]
     Indication: INTERVERTEBRAL DISC DISORDER
     Dosage: 60 MG 98 HOURS PO
     Route: 048
     Dates: start: 20060915
  2. MORPHINE SULFATE [Suspect]
     Indication: INTERVERTEBRAL DISC DISORDER
     Dosage: 60 MG 98 HOURS PO
     Route: 048
     Dates: start: 20060916

REACTIONS (2)
  - ASTHENIA [None]
  - HEART RATE INCREASED [None]
